FAERS Safety Report 4664151-9 (Version None)
Quarter: 2005Q2

REPORT INFORMATION
  Report Type: 
  Country: None (occurrence: None)
  Receive Date: 20050516
  Receipt Date: 20050516
  Transmission Date: 20051028
  Serious: Yes (Other)
  Sender: FDA-Public Use
  Company Number: None

PATIENT
  Age: 18 Year
  Sex: Female

DRUGS (1)
  1. OPTIRAY 320 [Suspect]

REACTIONS (2)
  - CONTRAST MEDIA REACTION [None]
  - DRUG HYPERSENSITIVITY [None]
